FAERS Safety Report 6255970-6 (Version None)
Quarter: 2009Q3

REPORT INFORMATION
  Report Type: 
  Country: None (occurrence: None)
  Receive Date: 20090706
  Receipt Date: 20090702
  Transmission Date: 20100115
  Serious: Yes (Death)
  Sender: FDA-Public Use
  Company Number: DE-BRISTOL-MYERS SQUIBB COMPANY-14686786

PATIENT
  Age: 80 Year
  Sex: Female

DRUGS (3)
  1. ENTECAVIR [Suspect]
     Indication: HEPATITIS B
     Route: 048
     Dates: start: 20070527, end: 20070603
  2. PANTOZOL [Concomitant]
     Dosage: FOR WEEKS
     Route: 048
  3. METOPROLOL SUCCINATE [Concomitant]
     Dosage: FOR WEEKS
     Route: 048

REACTIONS (1)
  - LACTIC ACIDOSIS [None]
